FAERS Safety Report 6152735-0 (Version None)
Quarter: 2009Q2

REPORT INFORMATION
  Report Type: 
  Country: None (occurrence: None)
  Receive Date: 20090413
  Receipt Date: 20090330
  Transmission Date: 20091009
  Serious: Yes (Death, Hospitalization, Other)
  Sender: FDA-Public Use
  Company Number: US-ROCHE-614043

PATIENT
  Sex: Female
  Weight: 86.2 kg

DRUGS (2)
  1. CAPECITABINE [Suspect]
     Indication: BREAST CANCER
     Dosage: DOSE: 500 MG - 6 TABLETS DAILY
     Route: 048
     Dates: start: 20081125
  2. IXEMPRA KIT [Concomitant]

REACTIONS (7)
  - ABDOMINAL PAIN UPPER [None]
  - DEHYDRATION [None]
  - DIARRHOEA [None]
  - METASTASES TO LIVER [None]
  - NAUSEA [None]
  - RED BLOOD CELL COUNT DECREASED [None]
  - VOMITING [None]
